FAERS Safety Report 15431256 (Version 1)
Quarter: 2018Q3

REPORT INFORMATION
  Report Type: Spontaneous
  Country: US (occurrence: US)
  Receive Date: 20180921
  Receipt Date: 20180921
  Transmission Date: 20181010
  Serious: Yes (Hospitalization)
  Sender: FDA-Public Use
  Company Number: None

PATIENT
  Sex: Female

DRUGS (12)
  1. SULFATRIM [Concomitant]
     Active Substance: SULFAMETHOXAZOLE\TRIMETHOPRIM
  2. CIPROFLOXACIN. [Concomitant]
     Active Substance: CIPROFLOXACIN
  3. PREDNISOLONE. [Concomitant]
     Active Substance: PREDNISOLONE
  4. TRIAMCINOLON [Concomitant]
  5. FLOVENT HFA [Concomitant]
     Active Substance: FLUTICASONE PROPIONATE
  6. LEVOCETIRIZI [Concomitant]
  7. AMOXICILLIN. [Concomitant]
     Active Substance: AMOXICILLIN
  8. BETHKIS [Concomitant]
     Active Substance: TOBRAMYCIN
  9. LEVALBUTEROL. [Concomitant]
     Active Substance: LEVALBUTEROL
  10. FERROUS SULFATE. [Concomitant]
     Active Substance: FERROUS SULFATE
  11. CIPRODEX [Concomitant]
     Active Substance: CIPROFLOXACIN HYDROCHLORIDE\DEXAMETHASONE
  12. PULMOZYME [Suspect]
     Active Substance: DORNASE ALFA
     Indication: CYSTIC FIBROSIS
     Route: 055
     Dates: start: 20180213

REACTIONS (1)
  - Surgery [None]
